FAERS Safety Report 7268701-8 (Version None)
Quarter: 2011Q1

REPORT INFORMATION
  Report Type: 
  Country: None (occurrence: None)
  Receive Date: 20110124
  Receipt Date: 20110107
  Transmission Date: 20110831
  Serious: Yes (Other)
  Sender: FDA-Public Use
  Company Number: AUR-APL-2010-02583

PATIENT
  Sex: Female

DRUGS (6)
  1. EZETIMIBE [Concomitant]
  2. LERCANIDIPINE [Concomitant]
  3. ASPIRIN [Concomitant]
  4. CANDESARTAN [Concomitant]
  5. BENDROFLUMETHIAZIDE [Concomitant]
  6. SIMVASTATIN [Suspect]
     Indication: HYPERCHOLESTEROLAEMIA
     Dosage: 40MG - QHS - ORAL
     Route: 048
     Dates: start: 20000101, end: 20100101

REACTIONS (5)
  - ARTHRALGIA [None]
  - RED BLOOD CELL SEDIMENTATION RATE INCREASED [None]
  - C-REACTIVE PROTEIN INCREASED [None]
  - PAIN IN EXTREMITY [None]
  - MUSCULOSKELETAL PAIN [None]
